FAERS Safety Report 8339960-5 (Version None)
Quarter: 2012Q2

REPORT INFORMATION
  Report Type: 
  Country: None (occurrence: None)
  Receive Date: 20120507
  Receipt Date: 20120504
  Transmission Date: 20120825
  Serious: Yes (Life-Threatening, Disabling, Other)
  Sender: FDA-Public Use
  Company Number: AU-PFIZER INC-2011239292

PATIENT
  Age: 39 Year
  Sex: Female
  Weight: 74 kg

DRUGS (5)
  1. ELEVIT PRONATAL [Concomitant]
     Indication: PREGNANCY
     Dosage: 1 DF, 1X/DAY
     Dates: start: 20110601, end: 20120301
  2. XANAX [Concomitant]
     Indication: PANIC ATTACK
  3. ZOLOFT [Suspect]
     Indication: ANXIETY
     Dosage: 50 MG, 1X/DAY
     Route: 048
  4. ZOLOFT [Suspect]
     Indication: DEPRESSION
  5. XANAX [Concomitant]
     Indication: ANXIETY
     Dosage: 0.125 MG TO 0.25 MG AS NEEDED
     Route: 048

REACTIONS (2)
  - HOMICIDAL IDEATION [None]
  - ANXIETY [None]
